FAERS Safety Report 5651657-9 (Version None)
Quarter: 2008Q1

REPORT INFORMATION
  Report Type: 
  Country: None (occurrence: None)
  Receive Date: 20080131
  Receipt Date: 20071106
  Transmission Date: 20080703
  Serious: No
  Sender: FDA-Public Use
  Company Number: US200711001160

PATIENT
  Age: 62 Year
  Sex: Female
  Weight: 72.6 kg

DRUGS (5)
  1. BYETTA [Suspect]
     Indication: WEIGHT CONTROL
     Dosage: 5 UG, 2/D, SUBCUTANEOUS; 10 UG, 2/D; SUBCUTANEOUS; 10 UG, 2/D; SUBCUTANEOUS
     Route: 058
     Dates: start: 20071004, end: 20071006
  2. BYETTA [Suspect]
     Indication: WEIGHT CONTROL
     Dosage: 5 UG, 2/D, SUBCUTANEOUS; 10 UG, 2/D; SUBCUTANEOUS; 10 UG, 2/D; SUBCUTANEOUS
     Route: 058
     Dates: start: 20071007, end: 20071018
  3. BYETTA [Suspect]
     Indication: WEIGHT CONTROL
     Dosage: 5 UG, 2/D, SUBCUTANEOUS; 10 UG, 2/D; SUBCUTANEOUS; 10 UG, 2/D; SUBCUTANEOUS
     Route: 058
     Dates: start: 20071019
  4. METFORMIN HCL [Concomitant]
  5. GLIPIZIDE [Concomitant]

REACTIONS (2)
  - BLOOD GLUCOSE INCREASED [None]
  - DRUG INEFFECTIVE [None]
